FAERS Safety Report 20466721 (Version 1)
Quarter: 2022Q1

REPORT INFORMATION
  Report Type: Spontaneous
  Country: US (occurrence: US)
  Receive Date: 20220213
  Receipt Date: 20220213
  Transmission Date: 20220423
  Serious: Yes (Hospitalization, Other)
  Sender: FDA-Public Use
  Company Number: US-AUROBINDO-AUR-APL-2022-004082

PATIENT
  Age: 37 Year
  Sex: Male

DRUGS (9)
  1. CLONIDINE [Suspect]
     Active Substance: CLONIDINE
     Indication: Bickerstaff^s encephalitis
     Dosage: 0.3 MILLIGRAM, ONCE A DAY
  2. CLONIDINE [Suspect]
     Active Substance: CLONIDINE
     Dosage: 0.2 MILLIGRAM/KILOGRAM
  3. CLONIDINE [Suspect]
     Active Substance: CLONIDINE
     Dosage: 1.2 MILLIGRAM, ONCE A DAY
  4. QUETIAPINE [Suspect]
     Active Substance: QUETIAPINE
     Indication: Bickerstaff^s encephalitis
     Dosage: 300 MILLIGRAM, ONCE A DAY
     Route: 065
  5. ZIPRASIDONE HYDROCHLORIDE [Suspect]
     Active Substance: ZIPRASIDONE HYDROCHLORIDE
     Indication: Bickerstaff^s encephalitis
     Dosage: 80 MILLIGRAM, ONCE A DAY
     Route: 065
  6. DEXMEDETOMIDINE [Concomitant]
     Active Substance: DEXMEDETOMIDINE
     Indication: Agitation
     Dosage: UNK
     Route: 065
  7. HUMAN IMMUNOGLOBULIN G [Concomitant]
     Active Substance: HUMAN IMMUNOGLOBULIN G
     Indication: Product used for unknown indication
     Dosage: UNK
     Route: 065
  8. VALPROIC ACID [Concomitant]
     Active Substance: VALPROIC ACID
     Indication: Product used for unknown indication
     Dosage: UNK
     Route: 065
  9. CLONAZEPAM [Concomitant]
     Active Substance: CLONAZEPAM
     Indication: Product used for unknown indication
     Dosage: UNK
     Route: 065

REACTIONS (3)
  - Bradycardia [Unknown]
  - Hypotension [Unknown]
  - Drug ineffective [Unknown]
